FAERS Safety Report 5232608-8 (Version None)
Quarter: 2007Q1

REPORT INFORMATION
  Report Type: 
  Country: None (occurrence: None)
  Receive Date: 20070207
  Receipt Date: 20070129
  Transmission Date: 20070707
  Serious: Yes (Death, Hospitalization)
  Sender: FDA-Public Use
  Company Number: PL-AVENTIS-200619602GDDC

PATIENT
  Age: 61 Year
  Sex: Female
  Weight: 59 kg

DRUGS (27)
  1. TAXOTERE [Suspect]
     Indication: BREAST CANCER METASTATIC
     Route: 042
     Dates: start: 20060804, end: 20060804
  2. CALCIUM DOBESILATE [Concomitant]
     Route: 048
     Dates: start: 20060822
  3. BISOCARD [Concomitant]
     Indication: HYPERTENSION
     Route: 048
  4. MAJAMIL [Concomitant]
     Indication: ANALGESIC EFFECT
     Route: 048
     Dates: start: 20060817
  5. PAMIFOS [Concomitant]
     Route: 042
     Dates: start: 20060428
  6. KETONAL                            /00321701/ [Concomitant]
     Route: 048
     Dates: start: 20060502
  7. TRAMADOL HCL [Concomitant]
     Indication: ANALGESIC EFFECT
     Route: 048
     Dates: start: 20060502
  8. ASPARGIN                           /00466901/ [Concomitant]
     Indication: PROPHYLAXIS
     Dosage: DOSE: 2 IN A  DAY
     Route: 048
     Dates: start: 20060509
  9. THEOPHYLLINE [Concomitant]
     Route: 048
     Dates: start: 20060502
  10. IMOVANE [Concomitant]
     Indication: SLEEP DISORDER
     Route: 048
     Dates: start: 20060512
  11. LANZUL [Concomitant]
     Indication: GASTROINTESTINAL DISORDER
     Route: 048
     Dates: start: 20060512
  12. MEGACE [Concomitant]
     Route: 048
     Dates: start: 20060524
  13. MILURIT [Concomitant]
     Route: 048
     Dates: start: 20060622
  14. FUROSEMIDE [Concomitant]
     Route: 048
     Dates: start: 20060713
  15. UNKNOWN DRUG [Concomitant]
     Indication: PROPHYLAXIS
     Route: 048
     Dates: start: 20060701
  16. DIFLUCAN [Concomitant]
     Route: 042
     Dates: start: 20060721
  17. CEFTAZIDIME [Concomitant]
     Route: 042
     Dates: start: 20060621
  18. TAZOCIN [Concomitant]
     Route: 042
     Dates: start: 20060811
  19. GRANOCYTE 34 [Concomitant]
     Route: 058
     Dates: start: 20060811
  20. KETOCONAZOLE [Concomitant]
     Route: 048
     Dates: start: 20060811
  21. ELECTROLYTE SOLUTIONS [Concomitant]
     Route: 042
  22. CALCIUM DOBESILATE [Concomitant]
     Route: 048
     Dates: start: 20060822
  23. CALCIUM DOBESILATE [Concomitant]
     Indication: ALBUMINURIA
     Route: 048
     Dates: start: 20060822
  24. SODIUM CHLORIDE [Concomitant]
     Route: 042
     Dates: start: 20060811
  25. TIMONACIC [Concomitant]
     Indication: PROPHYLAXIS
     Route: 048
     Dates: start: 20060421
  26. DROTAVERINE HYDROCHLORIDE [Concomitant]
     Indication: ANALGESIC EFFECT
     Route: 048
     Dates: start: 20060421
  27. DROTAVERINE HYDROCHLORIDE [Concomitant]
     Indication: BLOOD PRESSURE DIASTOLIC
     Route: 048
     Dates: start: 20060421

REACTIONS (8)
  - BREAST CANCER METASTATIC [None]
  - CONDITION AGGRAVATED [None]
  - CONVULSION [None]
  - FEBRILE NEUTROPENIA [None]
  - HEPATORENAL SYNDROME [None]
  - METASTASES TO CENTRAL NERVOUS SYSTEM [None]
  - PURPURA [None]
  - PYREXIA [None]
